FAERS Safety Report 21857070 (Version 7)
Quarter: 2023Q2

REPORT INFORMATION
  Report Type: Report from Study
  Country: CA (occurrence: CA)
  Receive Date: 20230113
  Receipt Date: 20230530
  Transmission Date: 20230722
  Serious: Yes (Hospitalization)
  Sender: FDA-Public Use
  Company Number: CA-JNJFOC-20230104974

PATIENT
  Age: 16 Year
  Sex: Male
  Weight: 48 kg

DRUGS (3)
  1. REMICADE [Suspect]
     Active Substance: INFLIXIMAB
     Indication: Colitis ulcerative
     Dosage: 500 MG INTRAVENOUS WEEK 0, 1 + 4 THEN EVERY 4 WEEK MAINTENANCE
     Route: 042
     Dates: start: 20221219
  2. REMICADE [Suspect]
     Active Substance: INFLIXIMAB
     Dosage: PHYSICIAN REQUESTING STAT DOSE
     Route: 041
     Dates: start: 2023, end: 20230331
  3. PREDNISONE [Concomitant]
     Active Substance: PREDNISONE
     Indication: Colitis ulcerative
     Dosage: FULL DOSE PREDNISONE
     Route: 048
     Dates: start: 20221223

REACTIONS (6)
  - Colitis ulcerative [Not Recovered/Not Resolved]
  - Middle insomnia [Unknown]
  - Pain [Unknown]
  - Drug level decreased [Unknown]
  - Treatment failure [Unknown]
  - Off label use [Unknown]

NARRATIVE: CASE EVENT DATE: 20221219
